FAERS Safety Report 15389812 (Version 1)
Quarter: 2018Q3

REPORT INFORMATION
  Report Type: Spontaneous
  Country: US (occurrence: US)
  Receive Date: 20180907
  Receipt Date: 20180907
  Transmission Date: 20181010
  Serious: Yes (Other)
  Sender: FDA-Public Use
  Company Number: None

PATIENT
  Age: 53 Year
  Sex: Female
  Weight: 53.1 kg

DRUGS (4)
  1. VITAMIN D [Concomitant]
     Active Substance: CHOLECALCIFEROL
  2. VITAMIN B [Concomitant]
     Active Substance: VITAMIN B
  3. MAGNESIUM [Concomitant]
     Active Substance: MAGNESIUM
  4. RESTASIS [Suspect]
     Active Substance: CYCLOSPORINE
     Indication: DRY EYE
     Dosage: ?          QUANTITY:1 GTT DROP(S);?
     Route: 047
     Dates: start: 20180501, end: 20180815

REACTIONS (1)
  - Eye pain [None]

NARRATIVE: CASE EVENT DATE: 20180801
